FAERS Safety Report 5528120-9 (Version None)
Quarter: 2007Q4

REPORT INFORMATION
  Report Type: 
  Country: None (occurrence: None)
  Receive Date: 20071126
  Receipt Date: 20071126
  Transmission Date: 20080405
  Serious: Yes (Other)
  Sender: FDA-Public Use
  Company Number: None

PATIENT
  Age: 73 Year
  Sex: Female
  Weight: 61.2356 kg

DRUGS (1)
  1. ASMANEX TWISTHALER [Suspect]
     Indication: ASTHMA
     Dosage: 1 INHALATION DAILY INHAL
     Route: 055
     Dates: start: 20071007, end: 20071123

REACTIONS (5)
  - CONFUSIONAL STATE [None]
  - DEPRESSION [None]
  - EYE PAIN [None]
  - SOMNOLENCE [None]
  - VISUAL DISTURBANCE [None]
